FAERS Safety Report 15059818 (Version 3)
Quarter: 2018Q3

REPORT INFORMATION
  Report Type: Spontaneous
  Country: JP (occurrence: JP)
  Receive Date: 20180625
  Receipt Date: 20180817
  Transmission Date: 20181010
  Serious: Yes (Hospitalization, Other)
  Sender: FDA-Public Use
  Company Number: JP-B.I. PHARMACEUTICALS,INC./RIDGEFIELD-2018-BI-032077

PATIENT
  Age: 66 Year
  Sex: Male
  Weight: 77.6 kg

DRUGS (2)
  1. BERAPROST SODIUM [Concomitant]
     Active Substance: BERAPROST SODIUM
     Indication: ATRIAL FIBRILLATION
     Route: 065
  2. PRAZAXA [Suspect]
     Active Substance: DABIGATRAN ETEXILATE MESYLATE
     Indication: ATRIAL FIBRILLATION
     Route: 065

REACTIONS (8)
  - Pancreatic pseudocyst [Recovering/Resolving]
  - Diverticulum intestinal haemorrhagic [Unknown]
  - Ischaemic pancreatitis [Unknown]
  - Splenic infarction [Recovering/Resolving]
  - Thrombosis [Unknown]
  - Fat tissue increased [Recovering/Resolving]
  - Gastroenteritis [Unknown]
  - Coagulation factor increased [Unknown]
